FAERS Safety Report 8131324 (Version 3)
Quarter: 2014Q2

REPORT INFORMATION
  Report Type: Spontaneous
  Country: US (occurrence: US)
  Receive Date: 20110912
  Receipt Date: 20140603
  Transmission Date: 20141212
  Serious: Yes (Death)
  Sender: FDA-Public Use
  Company Number: US-GLAXOSMITHKLINE-A0890949A

PATIENT
  Age: 67 Year
  Sex: Male
  Weight: 96.4 kg

DRUGS (12)
  1. AVANDIA [Suspect]
     Indication: DIABETES MELLITUS
     Route: 048
     Dates: start: 199908, end: 2008
  2. GLUCOPHAGE [Concomitant]
  3. HUMULIN [Concomitant]
  4. PEPCID [Concomitant]
  5. VIAGRA [Concomitant]
  6. REZULIN [Concomitant]
  7. SIMVASTATIN [Concomitant]
  8. BUPROPION [Concomitant]
  9. METFORMIN [Concomitant]
  10. ORLISTAT [Concomitant]
  11. VARDENAFIL [Concomitant]
  12. NOVOLIN [Concomitant]

REACTIONS (2)
  - Sudden cardiac death [Fatal]
  - Myocardial ischaemia [Unknown]
